FAERS Safety Report 8442128-5 (Version None)
Quarter: 2012Q2

REPORT INFORMATION
  Report Type: 
  Country: None (occurrence: None)
  Receive Date: 20120615
  Receipt Date: 20120611
  Transmission Date: 20120825
  Serious: Yes (Life-Threatening, Hospitalization, Other)
  Sender: FDA-Public Use
  Company Number: JP-PFIZER INC-2012104303

PATIENT
  Age: 51 Year
  Sex: Male
  Weight: 47 kg

DRUGS (6)
  1. PENTASA [Concomitant]
     Indication: COLITIS ULCERATIVE
     Dosage: 2000 MG, 2X/DAY
     Dates: start: 20120302, end: 20120410
  2. BETAMETHASONE SODIUM PHOSPHATE [Concomitant]
     Indication: COLITIS ULCERATIVE
     Dosage: 1.5 MG, AS NEEDED
     Route: 054
  3. ELENTAL [Concomitant]
     Indication: COLITIS ULCERATIVE
     Dosage: 160 G, 1X/DAY
     Route: 048
  4. MERCAPTOPURINE [Concomitant]
     Indication: COLITIS ULCERATIVE
     Dosage: 15 MG, 1X/DAY
     Route: 048
     Dates: start: 20120411, end: 20120418
  5. SULFASALAZINE [Suspect]
     Indication: COLITIS ULCERATIVE
     Dosage: 1000 MG, 4X/DAY
     Route: 048
     Dates: start: 20120411, end: 20120417
  6. MIYA BM [Concomitant]
     Indication: COLITIS ULCERATIVE
     Dosage: 1 G, 3X/DAY
     Route: 048

REACTIONS (1)
  - STEVENS-JOHNSON SYNDROME [None]
